FAERS Safety Report 24392656 (Version 1)
Quarter: 2024Q4

REPORT INFORMATION
  Report Type: Spontaneous
  Country: US (occurrence: None)
  Receive Date: 20241002
  Receipt Date: 20241002
  Transmission Date: 20250115
  Serious: Yes (unspecified)
  Sender: Public
  Company Number: None

PATIENT
  Age: 15 Year
  Sex: Male

DRUGS (1)
  1. HERBALS\TETRAHYDROCANNABINOL UNSPECIFIED [Suspect]
     Active Substance: HERBALS\TETRAHYDROCANNABINOL UNSPECIFIED

REACTIONS (5)
  - Overdose [None]
  - Toxicity to various agents [None]
  - Respiratory distress [None]
  - Musculoskeletal stiffness [None]
  - Fall [None]

NARRATIVE: CASE EVENT DATE: 20240916
